FAERS Safety Report 8453691-2 (Version None)
Quarter: 2012Q2

REPORT INFORMATION
  Report Type: 
  Country: None (occurrence: None)
  Receive Date: 20120620
  Receipt Date: 20120615
  Transmission Date: 20120825
  Serious: Yes (Hospitalization, Other)
  Sender: FDA-Public Use
  Company Number: CN-PFIZER INC-2012144347

PATIENT
  Sex: Female

DRUGS (3)
  1. PLAVIX [Concomitant]
     Dosage: UNK
  2. ACETYLSALICYLIC ACID [Concomitant]
     Dosage: UNK
  3. LIPITOR [Suspect]
     Dosage: UNK
     Route: 048
     Dates: start: 20120319

REACTIONS (6)
  - CHROMATURIA [None]
  - LABORATORY TEST ABNORMAL [None]
  - MYALGIA [None]
  - FEELING HOT [None]
  - MOVEMENT DISORDER [None]
  - DRUG HYPERSENSITIVITY [None]
